FAERS Safety Report 4875956-3 (Version None)
Quarter: 2005Q4

REPORT INFORMATION
  Report Type: 
  Country: None (occurrence: None)
  Receive Date: 20051205
  Receipt Date: 20050803
  Transmission Date: 20060501
  Serious: Yes (Hospitalization)
  Sender: FDA-Public Use
  Company Number: USA0508104544

PATIENT
  Age: 74 Year
  Sex: Male

DRUGS (4)
  1. ALIMTA [Suspect]
     Indication: NON-SMALL CELL LUNG CANCER
     Dosage: 500 MG/M2
     Dates: start: 20050712
  2. FOLIC ACID [Concomitant]
  3. VITAMIN B-12 [Concomitant]
  4. DEXAMETHASONE TAB [Concomitant]

REACTIONS (2)
  - NEUTROPHIL COUNT DECREASED [None]
  - PYREXIA [None]
